FAERS Safety Report 8847241 (Version 1)
Quarter: 2012Q4

REPORT INFORMATION
  Report Type: 
  Country: US (occurrence: US)
  Receive Date: 20121018
  Receipt Date: 20121018
  Transmission Date: 20130627
  Serious: Yes (Hospitalization)
  Sender: FDA-Public Use
  Company Number: PHHY2012US089899

PATIENT
  Age: 45 Year
  Sex: Female

DRUGS (4)
  1. OXALIPLATIN [Suspect]
     Indication: COLORECTAL CANCER STAGE III
  2. 5-FLUOROURACIL [Concomitant]
  3. LEUCOVORIN [Concomitant]
  4. BEVACIZUMAB [Concomitant]

REACTIONS (5)
  - Portal hypertension [Recovered/Resolved]
  - Portal hypertensive gastropathy [Recovered/Resolved]
  - Gastrointestinal haemorrhage [Recovered/Resolved]
  - Haematemesis [Recovered/Resolved]
  - Hepatic steatosis [Recovered/Resolved]
